FAERS Safety Report 6586851-6 (Version None)
Quarter: 2010Q1

REPORT INFORMATION
  Report Type: 
  Country: None (occurrence: None)
  Receive Date: 20100217
  Receipt Date: 20090728
  Transmission Date: 20100710
  Serious: No
  Sender: FDA-Public Use
  Company Number: US-ALLERGAN-0910494US

PATIENT
  Age: 58 Year
  Sex: Female

DRUGS (2)
  1. BOTOX COSMETIC [Suspect]
     Indication: SKIN WRINKLING
     Dosage: UNK, SINGLE
     Route: 030
     Dates: start: 20090722, end: 20090722
  2. JUVEDERM [Suspect]
     Indication: SKIN WRINKLING

REACTIONS (2)
  - BLOOD PRESSURE INCREASED [None]
  - CONTUSION [None]
